FAERS Safety Report 8717527 (Version 2)
Quarter: 2013Q1

REPORT INFORMATION
  Report Type: Spontaneous
  Country: US (occurrence: US)
  Receive Date: 20120810
  Receipt Date: 20130118
  Transmission Date: 20140127
  Serious: Yes (Other)
  Sender: FDA-Public Use
  Company Number: US-ASTRAZENECA-2012SE52715

PATIENT
  Age: 62 Year
  Sex: Female

DRUGS (3)
  1. NEXIUM [Suspect]
     Indication: GASTROOESOPHAGEAL REFLUX DISEASE
     Route: 048
  2. NEXIUM [Suspect]
     Indication: HIATUS HERNIA
     Route: 048
  3. BRILINTA [Suspect]
     Route: 048

REACTIONS (7)
  - Deafness unilateral [Unknown]
  - Excessive eye blinking [Unknown]
  - Blepharospasm [Unknown]
  - Polyarthritis [Unknown]
  - Pain in extremity [Unknown]
  - Amnesia [Unknown]
  - Lip swelling [Unknown]
